FAERS Safety Report 5548774-0 (Version None)
Quarter: 2007Q4

REPORT INFORMATION
  Report Type: 
  Country: None (occurrence: None)
  Receive Date: 20071211
  Receipt Date: 20070411
  Transmission Date: 20080405
  Serious: No
  Sender: FDA-Public Use
  Company Number: US-AMGEN-KDL213088

PATIENT
  Sex: Female

DRUGS (7)
  1. ENBREL [Suspect]
     Indication: RHEUMATOID ARTHRITIS
     Route: 058
     Dates: start: 20000401
  2. MOBIC [Suspect]
  3. DIGOXIN [Concomitant]
  4. PRILOSEC [Concomitant]
  5. VICODIN [Concomitant]
  6. HORMONE NOS [Concomitant]
  7. EFFEXOR [Concomitant]

REACTIONS (3)
  - CONTUSION [None]
  - RHEUMATOID ARTHRITIS [None]
  - STRESS [None]
